FAERS Safety Report 26142460 (Version 1)
Quarter: 2025Q4

REPORT INFORMATION
  Report Type: Report from Study
  Country: US (occurrence: US)
  Receive Date: 20251210
  Receipt Date: 20251210
  Transmission Date: 20260118
  Serious: Yes (Other)
  Sender: ALEXION PHARMACEUTICALS
  Company Number: US-AstraZeneca-CH-01008018A

PATIENT
  Sex: Male
  Weight: 99.138 kg

DRUGS (1)
  1. ACALABRUTINIB [Suspect]
     Active Substance: ACALABRUTINIB
     Indication: Chronic lymphocytic leukaemia refractory
     Dosage: 100 MILLIGRAM, QD

REACTIONS (3)
  - Renal impairment [Unknown]
  - Oedema peripheral [Unknown]
  - Vitamin B12 decreased [Unknown]
